FAERS Safety Report 8782562 (Version 1)
Quarter: 2012Q4

REPORT INFORMATION
  Report Type: 
  Country: US (occurrence: US)
  Receive Date: 20120914
  Receipt Date: 20120914
  Transmission Date: 20130627
  Serious: Yes (Other)
  Sender: FDA-Public Use
  Company Number: US-ROCHE-1126464

PATIENT
  Age: 15 Year
  Sex: Male

DRUGS (2)
  1. TOCILIZUMAB [Suspect]
     Indication: JUVENILE ARTHRITIS
     Route: 065
  2. CYCLOSPORINE [Concomitant]
     Indication: JUVENILE ARTHRITIS
     Route: 065

REACTIONS (1)
  - Pancytopenia [Recovered/Resolved]
